FAERS Safety Report 6603412-0 (Version None)
Quarter: 2010Q1

REPORT INFORMATION
  Report Type: 
  Country: None (occurrence: None)
  Receive Date: 20100226
  Receipt Date: 20090430
  Transmission Date: 20100710
  Serious: No
  Sender: FDA-Public Use
  Company Number: A0781536A

PATIENT
  Age: 47 Year
  Sex: Female

DRUGS (5)
  1. VALTREX [Suspect]
     Dosage: 500MG PER DAY
     Route: 048
  2. BIRTH CONTROL [Concomitant]
  3. PRAVACHOL [Concomitant]
  4. TEMAZEPAM [Concomitant]
  5. SINGULAIR [Concomitant]

REACTIONS (3)
  - DEPRESSION [None]
  - HEADACHE [None]
  - PREMENSTRUAL SYNDROME [None]
